FAERS Safety Report 6729752-2 (Version None)
Quarter: 2010Q2

REPORT INFORMATION
  Report Type: 
  Country: None (occurrence: None)
  Receive Date: 20100513
  Receipt Date: 20100507
  Transmission Date: 20101027
  Serious: Yes (Hospitalization)
  Sender: FDA-Public Use
  Company Number: 2008SP016394

PATIENT
  Age: 65 Year
  Sex: Female
  Weight: 74 kg

DRUGS (8)
  1. VIRAFERONPEG [Suspect]
     Indication: HEPATITIS C
     Dosage: 45 MCG;QW;SC, 40 MCG;QW, 35 MSC;QW, 30 MCG;QW
     Route: 058
     Dates: start: 20061212, end: 20070313
  2. VIRAFERONPEG [Suspect]
     Indication: HEPATITIS C
     Dosage: 45 MCG;QW;SC, 40 MCG;QW, 35 MSC;QW, 30 MCG;QW
     Route: 058
     Dates: start: 20070314, end: 20070904
  3. VIRAFERONPEG [Suspect]
     Indication: HEPATITIS C
     Dosage: 45 MCG;QW;SC, 40 MCG;QW, 35 MSC;QW, 30 MCG;QW
     Route: 058
     Dates: start: 20070905, end: 20080313
  4. VIRAFERONPEG [Suspect]
     Indication: HEPATITIS C
     Dosage: 45 MCG;QW;SC, 40 MCG;QW, 35 MSC;QW, 30 MCG;QW
     Route: 058
     Dates: start: 20080314, end: 20080822
  5. REBETOL [Suspect]
     Indication: HEPATITIS C
     Dosage: 1200 MG;QD;PO, 1000 MG;QD;PO, 600 MG;QD;PO, 400 MG;QD;PO
     Route: 048
     Dates: start: 20061212, end: 20070313
  6. REBETOL [Suspect]
     Indication: HEPATITIS C
     Dosage: 1200 MG;QD;PO, 1000 MG;QD;PO, 600 MG;QD;PO, 400 MG;QD;PO
     Route: 048
     Dates: start: 20070314, end: 20080313
  7. REBETOL [Suspect]
     Indication: HEPATITIS C
     Dosage: 1200 MG;QD;PO, 1000 MG;QD;PO, 600 MG;QD;PO, 400 MG;QD;PO
     Route: 048
     Dates: start: 20080314, end: 20080808
  8. REBETOL [Suspect]
     Indication: HEPATITIS C
     Dosage: 1200 MG;QD;PO, 1000 MG;QD;PO, 600 MG;QD;PO, 400 MG;QD;PO
     Route: 048
     Dates: start: 20080809, end: 20080822

REACTIONS (4)
  - ASTHENIA [None]
  - HEPATIC CYST [None]
  - PROTHROMBIN LEVEL DECREASED [None]
  - PULMONARY EMBOLISM [None]
